FAERS Safety Report 26121670 (Version 2)
Quarter: 2025Q4

REPORT INFORMATION
  Report Type: Spontaneous
  Country: EU (occurrence: EU)
  Receive Date: 20251204
  Receipt Date: 20251216
  Transmission Date: 20260117
  Serious: No
  Sender: MERCK SHARP & DOHME LLC
  Company Number: EU-PHARMAGEN-PHARMAGEN20251111_Lit

PATIENT
  Age: 34 Year
  Sex: Female

DRUGS (3)
  1. PEMBROLIZUMAB [Suspect]
     Active Substance: PEMBROLIZUMAB
     Indication: Adrenocortical carcinoma
  2. EVEROLIMUS [Concomitant]
     Active Substance: EVEROLIMUS
     Indication: Adrenocortical carcinoma
  3. CABOZANTINIB [Concomitant]
     Active Substance: CABOZANTINIB
     Indication: Adrenocortical carcinoma

REACTIONS (1)
  - Product use in unapproved indication [Unknown]
